FAERS Safety Report 17771056 (Version 1)
Quarter: 2020Q2

REPORT INFORMATION
  Report Type: Spontaneous
  Country: FR (occurrence: FR)
  Receive Date: 20200512
  Receipt Date: 20200512
  Transmission Date: 20200714
  Serious: Yes (Other)
  Sender: FDA-Public Use
  Company Number: FR-JNJFOC-20190813906

PATIENT
  Age: 8 Decade
  Sex: Male

DRUGS (3)
  1. NEBIVOLOL. [Concomitant]
     Active Substance: NEBIVOLOL
     Indication: HYPERTENSION
     Route: 065
  2. AMLODIPINE [Concomitant]
     Active Substance: AMLODIPINE BESYLATE
     Indication: HYPERTENSION
     Route: 065
  3. ZYTIGA [Suspect]
     Active Substance: ABIRATERONE ACETATE
     Indication: PROSTATE CANCER
     Route: 048
     Dates: start: 201907, end: 20191101

REACTIONS (8)
  - Hot flush [Unknown]
  - Renal impairment [Unknown]
  - Liver disorder [Unknown]
  - Feeling abnormal [Unknown]
  - Adverse event [Unknown]
  - Asthenia [Unknown]
  - Blood potassium abnormal [Unknown]
  - Blood pressure increased [Unknown]

NARRATIVE: CASE EVENT DATE: 201908
